FAERS Safety Report 12109514 (Version 1)
Quarter: 2016Q1

REPORT INFORMATION
  Report Type: Spontaneous
  Country: US (occurrence: None)
  Receive Date: 20160223
  Receipt Date: 20160223
  Transmission Date: 20160526
  Serious: No
  Sender: FDA-Public Use
  Company Number: None

PATIENT
  Age: 63 Year
  Sex: Female

DRUGS (1)
  1. IBRANCE [Suspect]
     Active Substance: PALBOCICLIB
     Indication: BREAST CANCER
     Route: 048
     Dates: start: 201510

REACTIONS (4)
  - Pruritus [None]
  - Fatigue [None]
  - Depressed level of consciousness [None]
  - Skin ulcer [None]

NARRATIVE: CASE EVENT DATE: 201602
